FAERS Safety Report 12176866 (Version 1)
Quarter: 2016Q1

REPORT INFORMATION
  Report Type: Other
  Country: FR (occurrence: FR)
  Receive Date: 20160314
  Receipt Date: 20160314
  Transmission Date: 20160526
  Serious: Yes (Hospitalization)
  Sender: FDA-Public Use
  Company Number: FR-SYMPLMED PHARMACEUTICALS-2016SYMPLMED000169

PATIENT

DRUGS (14)
  1. PERINDOPRIL [Suspect]
     Active Substance: PERINDOPRIL
     Dosage: 10 MG-17.5 MG, SINGLE
     Route: 048
     Dates: start: 20160125, end: 20160125
  2. CETIRIZINE [Suspect]
     Active Substance: CETIRIZINE HYDROCHLORIDE
     Dosage: 40 MG-70 MG, SINGLE
     Route: 048
     Dates: start: 20160125, end: 20160125
  3. PERINDOPRIL [Suspect]
     Active Substance: PERINDOPRIL
     Indication: PRODUCT USED FOR UNKNOWN INDICATION
     Dosage: 2.5 MG, UNK
     Route: 048
  4. MONTELUKAST [Suspect]
     Active Substance: MONTELUKAST SODIUM
     Indication: PRODUCT USED FOR UNKNOWN INDICATION
     Dosage: 10 MG, UNK
     Route: 048
  5. PROCORALAN [Suspect]
     Active Substance: IVABRADINE
     Dosage: 70 MG, SINGLE
     Route: 048
     Dates: start: 20160125, end: 20160125
  6. ZOPICLONE [Suspect]
     Active Substance: ZOPICLONE
     Dosage: 37.5 MG, SINGLE
     Route: 048
     Dates: start: 20160125, end: 20160125
  7. ESCITALOPRAM [Suspect]
     Active Substance: ESCITALOPRAM OXALATE
     Dosage: 70 MG, SINGLE
     Route: 048
     Dates: start: 20160125, end: 20160125
  8. CETIRIZINE [Suspect]
     Active Substance: CETIRIZINE HYDROCHLORIDE
     Indication: PRODUCT USED FOR UNKNOWN INDICATION
     Dosage: 10 MG, UNK
     Route: 048
  9. COUMADINE [Suspect]
     Active Substance: WARFARIN SODIUM
     Dosage: 100 MG-140 MG, SINGLE
     Route: 048
     Dates: start: 20160125, end: 20160125
  10. ESCITALOPRAM [Suspect]
     Active Substance: ESCITALOPRAM OXALATE
     Indication: PRODUCT USED FOR UNKNOWN INDICATION
     Dosage: 10 MG, UNK
     Route: 048
  11. PROCORALAN [Suspect]
     Active Substance: IVABRADINE
     Indication: PRODUCT USED FOR UNKNOWN INDICATION
     Dosage: 5 MG, UNK
     Route: 048
  12. ZOPICLONE [Suspect]
     Active Substance: ZOPICLONE
     Indication: PRODUCT USED FOR UNKNOWN INDICATION
     Dosage: 7.5 MG, UNK
     Route: 048
  13. COUMADINE [Suspect]
     Active Substance: WARFARIN SODIUM
     Indication: PRODUCT USED FOR UNKNOWN INDICATION
     Dosage: 10 MG, UNK
     Route: 048
  14. MONTELUKAST [Suspect]
     Active Substance: MONTELUKAST SODIUM
     Dosage: 40 MG-70 MG, SINGLE
     Route: 048
     Dates: start: 20160125, end: 20160125

REACTIONS (15)
  - Accidental overdose [Unknown]
  - International normalised ratio increased [Unknown]
  - Ejection fraction decreased [Unknown]
  - Amnesia [Unknown]
  - Asthenia [Unknown]
  - Confusional state [Recovered/Resolved]
  - Medication error [Unknown]
  - Disorientation [Unknown]
  - Coma scale abnormal [Unknown]
  - Bradycardia [Unknown]
  - Mydriasis [Unknown]
  - Hypotonia [Unknown]
  - Electrocardiogram QT prolonged [Unknown]
  - Fall [Unknown]
  - Somnolence [Unknown]

NARRATIVE: CASE EVENT DATE: 20160124
